FAERS Safety Report 5143556-6 (Version None)
Quarter: 2006Q4

REPORT INFORMATION
  Report Type: 
  Country: None (occurrence: None)
  Receive Date: 20061030
  Receipt Date: 20061017
  Transmission Date: 20070319
  Serious: Yes (Life-Threatening, Hospitalization)
  Sender: FDA-Public Use
  Company Number: 2006127613

PATIENT
  Sex: Male
  Weight: 20 kg

DRUGS (5)
  1. METHYLPREDNISOLONE SODIUM SUCCINATE [Suspect]
     Indication: RENAL TRANSPLANT
     Dosage: 200 MG, INTRAVENOUS
     Dates: start: 20060507
  2. ALFACALCIDOL (ALFACALCIDOL) [Concomitant]
  3. CEPHALEXIN [Concomitant]
  4. MYCOPHENOLIC ACID [Concomitant]
  5. OXYBUTYNIN CHLORIDE [Concomitant]

REACTIONS (2)
  - ANAPHYLACTIC REACTION [None]
  - METABOLIC ACIDOSIS [None]
